FAERS Safety Report 15224917 (Version 2)
Quarter: 2018Q3

REPORT INFORMATION
  Report Type: Spontaneous
  Country: JP (occurrence: JP)
  Receive Date: 20180731
  Receipt Date: 20180831
  Transmission Date: 20181010
  Serious: Yes (Other)
  Sender: FDA-Public Use
  Company Number: JP-009507513-1807JPN002942J

PATIENT
  Age: 4 Decade
  Sex: Female

DRUGS (1)
  1. REMERON [Suspect]
     Active Substance: MIRTAZAPINE
     Dosage: 15 MG, UNK
     Route: 048

REACTIONS (1)
  - Drug-induced liver injury [Unknown]
